FAERS Safety Report 14068461 (Version 1)
Quarter: 2017Q4

REPORT INFORMATION
  Report Type: Spontaneous
  Country: US (occurrence: US)
  Receive Date: 20171010
  Receipt Date: 20171010
  Transmission Date: 20180321
  Serious: Yes (Life-Threatening, Disabling, Other)
  Sender: FDA-Public Use
  Company Number: None

PATIENT
  Age: 36 Year
  Sex: Female

DRUGS (5)
  1. TRAZODONE [Concomitant]
     Active Substance: TRAZODONE HYDROCHLORIDE
  2. METFORMIN [Concomitant]
     Active Substance: METFORMIN HYDROCHLORIDE
  3. BUSBARS [Concomitant]
  4. INVOKANA [Suspect]
     Active Substance: CANAGLIFLOZIN
     Indication: DIABETES MELLITUS
     Dosage: ?          QUANTITY:1 TABLET(S);?
     Route: 048
  5. LISINIPRIL [Concomitant]
     Active Substance: LISINOPRIL

REACTIONS (12)
  - Nausea [None]
  - Blood glucose increased [None]
  - Uterine pain [None]
  - Fatigue [None]
  - Malaise [None]
  - Loss of personal independence in daily activities [None]
  - Vulvovaginal pain [None]
  - Fungal infection [None]
  - Weight increased [None]
  - Hypertension [None]
  - Pain [None]
  - Urinary tract infection [None]
